FAERS Safety Report 10146752 (Version 1)
Quarter: 2014Q2

REPORT INFORMATION
  Report Type: Spontaneous
  Country: US (occurrence: US)
  Receive Date: 20140501
  Receipt Date: 20140501
  Transmission Date: 20141212
  Serious: No
  Sender: FDA-Public Use
  Company Number: US-BAUSCH-BL-2013-004751

PATIENT
  Age: 69 Year
  Sex: Male

DRUGS (4)
  1. LOTEMAX (LOTEPREDNOL ETABONATE OPHTHALMIC SUSPENSION 0.5%) [Suspect]
     Indication: PRODUCT USED FOR UNKNOWN INDICATION
     Dosage: 1 DROP; RIGHT EYE; TWICE DAILY
     Route: 047
     Dates: start: 20130806
  2. LOTEMAX (LOTEPREDNOL ETABONATE OPHTHALMIC SUSPENSION 0.5%) [Suspect]
     Dosage: 1 DROP; LEFT EYE; TWICE DAILY
     Route: 047
     Dates: start: 20130806
  3. RESTASIS [Concomitant]
     Indication: DRY EYE
     Dosage: 1 DROP; RIGHT EYE; TWICE DAILY
     Route: 047
     Dates: start: 20130806
  4. RESTASIS [Concomitant]
     Dosage: 1 DROP; LEFT EYE; TWICE DAILY
     Route: 047
     Dates: start: 20130806

REACTIONS (2)
  - Eye irritation [Not Recovered/Not Resolved]
  - Eyelid irritation [Not Recovered/Not Resolved]
